FAERS Safety Report 17671309 (Version 1)
Quarter: 2020Q2

REPORT INFORMATION
  Report Type: Spontaneous
  Country: IT (occurrence: IT)
  Receive Date: 20200415
  Receipt Date: 20200415
  Transmission Date: 20200713
  Serious: Yes (Other)
  Sender: FDA-Public Use
  Company Number: IT-TEVA-2020-IT-1222514

PATIENT
  Age: 53 Year
  Sex: Male

DRUGS (3)
  1. CETUXIMAB. [Concomitant]
     Active Substance: CETUXIMAB
     Indication: OROPHARYNGEAL SQUAMOUS CELL CARCINOMA
     Dosage: 6 CYCLES ADMINISTERED
     Route: 065
     Dates: start: 201701, end: 201705
  2. CISPLATIN. [Concomitant]
     Active Substance: CISPLATIN
     Indication: OROPHARYNGEAL SQUAMOUS CELL CARCINOMA
     Dosage: 6 CYCLES ADMINISTERED
     Route: 065
     Dates: start: 201701, end: 201705
  3. FLUOROURACIL. [Suspect]
     Active Substance: FLUOROURACIL
     Indication: OROPHARYNGEAL SQUAMOUS CELL CARCINOMA
     Dosage: 3 CYCLES ADMINISTERED
     Route: 065
     Dates: start: 201701, end: 2017

REACTIONS (2)
  - Gastrointestinal toxicity [Unknown]
  - Skin toxicity [Unknown]
